FAERS Safety Report 23968506 (Version 1)
Quarter: 2024Q2

REPORT INFORMATION
  Report Type: Spontaneous
  Country: JP (occurrence: JP)
  Receive Date: 20240612
  Receipt Date: 20240612
  Transmission Date: 20240715
  Serious: Yes (Hospitalization, Other)
  Sender: FDA-Public Use
  Company Number: JP-OTSUKA-2024_016391

PATIENT
  Age: 9 Decade
  Sex: Male
  Weight: 51.3 kg

DRUGS (11)
  1. SAMSCA [Suspect]
     Active Substance: TOLVAPTAN
     Indication: Generalised oedema
     Dosage: 1T(7.5MG/DAY)
     Route: 048
  2. CILOSTAZOL [Suspect]
     Active Substance: CILOSTAZOL
     Indication: Generalised oedema
     Dosage: 2T(200MG/DAY)
     Route: 048
  3. ESOMEPRAZOLE MAGNESIUM [Concomitant]
     Active Substance: ESOMEPRAZOLE MAGNESIUM
     Indication: Product used for unknown indication
     Dosage: (20)1T
     Route: 065
  4. AZILSARTAN KAMEDOXOMIL [Concomitant]
     Active Substance: AZILSARTAN KAMEDOXOMIL
     Indication: Product used for unknown indication
     Dosage: (20)1T
     Route: 065
  5. CARVEDILOL [Concomitant]
     Active Substance: CARVEDILOL
     Indication: Product used for unknown indication
     Dosage: (20)1T
     Route: 065
  6. AMLODIPINE BESYLATE [Concomitant]
     Active Substance: AMLODIPINE BESYLATE
     Indication: Product used for unknown indication
     Dosage: (2.5)1T
     Route: 065
  7. WARFARIN POTASSIUM [Concomitant]
     Active Substance: WARFARIN POTASSIUM
     Indication: Product used for unknown indication
     Dosage: 1.5MG/DAY
     Route: 048
  8. BETAMETHASONE SODIUM PHOSPHATE [Concomitant]
     Active Substance: BETAMETHASONE SODIUM PHOSPHATE
     Indication: Product used for unknown indication
     Dosage: (0.5)0.5T
     Route: 065
  9. ENTRESTO [Concomitant]
     Active Substance: SACUBITRIL\VALSARTAN
     Indication: Cardiac failure
     Dosage: 100MG
     Route: 065
  10. SPIRONOLACTONE [Concomitant]
     Active Substance: SPIRONOLACTONE
     Indication: Cardiac failure
     Dosage: 25MG
     Route: 065
  11. FUROSEMIDE [Concomitant]
     Active Substance: FUROSEMIDE
     Indication: Oedema peripheral
     Dosage: 20MG
     Route: 042

REACTIONS (4)
  - Dyspnoea [Recovered/Resolved]
  - Haemoglobin decreased [Unknown]
  - Oedema peripheral [Recovered/Resolved]
  - Product use in unapproved indication [Unknown]
